FAERS Safety Report 5958163-2 (Version None)
Quarter: 2008Q4

REPORT INFORMATION
  Report Type: 
  Country: None (occurrence: None)
  Receive Date: 20081119
  Receipt Date: 20081104
  Transmission Date: 20090506
  Serious: Yes (Death)
  Sender: FDA-Public Use
  Company Number: US-GENENTECH-269308

PATIENT
  Age: 59 Year
  Sex: Female

DRUGS (3)
  1. BEVACIZUMAB [Suspect]
     Indication: BILE DUCT CANCER
     Dosage: 248 MG, UNK
     Route: 042
     Dates: start: 20080403
  2. BEVACIZUMAB [Suspect]
     Dosage: 5 MG/KG, UNK
     Route: 042
     Dates: start: 20080225, end: 20080403
  3. ERLOTINIB [Suspect]
     Indication: BILE DUCT CANCER
     Dosage: 150 MG, QD
     Route: 048
     Dates: start: 20080225

REACTIONS (2)
  - DEATH [None]
  - PORTAL VEIN THROMBOSIS [None]
